FAERS Safety Report 8923495 (Version 3)
Quarter: 2013Q3

REPORT INFORMATION
  Report Type: Spontaneous
  Country: BR (occurrence: None)
  Receive Date: 20121114
  Receipt Date: 20130701
  Transmission Date: 20140515
  Serious: Yes (Hospitalization, Other)
  Sender: FDA-Public Use
  Company Number: DSU-2012-08875

PATIENT
  Age: 53 Year
  Sex: Female
  Weight: 70 kg

DRUGS (7)
  1. OLMETEC HCT [Suspect]
     Indication: HYPERTENSION
     Route: 048
     Dates: start: 20121030
  2. TRAMAL [Suspect]
     Indication: TRIGEMINAL NEURALGIA
     Dates: start: 2007
  3. TEGRETOL [Concomitant]
  4. PROPANOLOL [Concomitant]
  5. CAPTOPRIL [Concomitant]
  6. VALIUM [Concomitant]
  7. OMEPRAZOLE [Concomitant]

REACTIONS (14)
  - Gastric disorder [None]
  - Trigeminal nerve disorder [None]
  - Product taste abnormal [None]
  - Somnolence [None]
  - Product formulation issue [None]
  - Drug effect decreased [None]
  - Swelling face [None]
  - Tooth extraction [None]
  - Vth nerve injury [None]
  - Procedural complication [None]
  - Abdominal pain upper [None]
  - Spinal pain [None]
  - Condition aggravated [None]
  - Pain [None]
